FAERS Safety Report 6557733-0 (Version None)
Quarter: 2010Q1

REPORT INFORMATION
  Report Type: 
  Country: None (occurrence: None)
  Receive Date: 20100126
  Receipt Date: 20091218
  Transmission Date: 20100710
  Serious: Yes (Hospitalization)
  Sender: FDA-Public Use
  Company Number: LMI-2009-00375 (0)

PATIENT
  Age: 83 Year
  Sex: Female
  Weight: 117 kg

DRUGS (27)
  1. DEFINITY [Suspect]
     Indication: ARRHYTHMIA
     Dosage: SEE IMAGE
     Route: 042
     Dates: start: 20091216, end: 20091216
  2. DEFINITY [Suspect]
     Indication: ECHOCARDIOGRAM
     Dosage: SEE IMAGE
     Route: 042
     Dates: start: 20091216, end: 20091216
  3. DEFINITY [Suspect]
     Indication: INTRACARDIAC THROMBUS
     Dosage: SEE IMAGE
     Route: 042
     Dates: start: 20091216, end: 20091216
  4. DEFINITY [Suspect]
     Indication: ARRHYTHMIA
     Dosage: SEE IMAGE
     Route: 042
     Dates: start: 20091216, end: 20091216
  5. DEFINITY [Suspect]
     Indication: ECHOCARDIOGRAM
     Dosage: SEE IMAGE
     Route: 042
     Dates: start: 20091216, end: 20091216
  6. DEFINITY [Suspect]
     Indication: INTRACARDIAC THROMBUS
     Dosage: SEE IMAGE
     Route: 042
     Dates: start: 20091216, end: 20091216
  7. DEFINITY [Suspect]
     Indication: ARRHYTHMIA
     Dosage: SEE IMAGE
     Route: 042
     Dates: start: 20091216, end: 20091216
  8. DEFINITY [Suspect]
     Indication: ECHOCARDIOGRAM
     Dosage: SEE IMAGE
     Route: 042
     Dates: start: 20091216, end: 20091216
  9. DEFINITY [Suspect]
     Indication: INTRACARDIAC THROMBUS
     Dosage: SEE IMAGE
     Route: 042
     Dates: start: 20091216, end: 20091216
  10. DEFINITY [Suspect]
     Indication: ARRHYTHMIA
     Dosage: SEE IMAGE
     Route: 042
     Dates: start: 20091216, end: 20091216
  11. DEFINITY [Suspect]
     Indication: ECHOCARDIOGRAM
     Dosage: SEE IMAGE
     Route: 042
     Dates: start: 20091216, end: 20091216
  12. DEFINITY [Suspect]
     Indication: INTRACARDIAC THROMBUS
     Dosage: SEE IMAGE
     Route: 042
     Dates: start: 20091216, end: 20091216
  13. LEVEMIR [Concomitant]
  14. NEXIUM [Concomitant]
  15. NOVOLOG INSULIN (INSULIN ASPART) [Concomitant]
  16. PLAVIX [Concomitant]
  17. ZOCOR [Concomitant]
  18. XALATAN [Concomitant]
  19. CARVEDILOL [Concomitant]
  20. ALPHAGAN [Concomitant]
  21. AMIODARONE HCL [Concomitant]
  22. ENTERIC ASPIRIN (ACETYLSALICYLIC ACID) [Concomitant]
  23. COZAAR [Concomitant]
  24. DORZOLAMIDE [Concomitant]
  25. TIMOPTIC [Concomitant]
  26. LASIX [Concomitant]
  27. DETROL LA [Concomitant]

REACTIONS (1)
  - ATRIAL FIBRILLATION [None]
